FAERS Safety Report 10447818 (Version 2)
Quarter: 2014Q4

REPORT INFORMATION
  Report Type: Report from Study
  Country: JP (occurrence: JP)
  Receive Date: 20140911
  Receipt Date: 20141105
  Transmission Date: 20150528
  Serious: Yes (Death, Other)
  Sender: FDA-Public Use
  Company Number: PHHY2008JP045419

PATIENT
  Age: 73 Year
  Sex: Male
  Weight: 52 kg

DRUGS (13)
  1. ENTERONON [Concomitant]
     Indication: PROPHYLAXIS
     Dosage: 3 G, UNK
     Route: 048
     Dates: start: 200809, end: 20081231
  2. PLATELETS [Concomitant]
     Active Substance: HUMAN PLATELET, ALLOGENIC
     Indication: MYELODYSPLASTIC SYNDROME
     Dosage: 10 U, 2-3 TIMES A WEEK
     Route: 065
     Dates: start: 20080804, end: 20080910
  3. JUZENTAIHOTO                       /07985601/ [Concomitant]
     Indication: MYELODYSPLASTIC SYNDROME
     Dosage: 3 DF, UNK
     Route: 048
     Dates: start: 200809, end: 20081231
  4. ICL670A [Suspect]
     Active Substance: DEFERASIROX
     Indication: MYELODYSPLASTIC SYNDROME
     Dosage: 1000 MG, QD
     Route: 065
     Dates: start: 20080901, end: 20081223
  5. LAC B [Concomitant]
     Active Substance: BIFIDOBACTERIUM SPP.
     Indication: PROPHYLAXIS
     Dosage: 3 G, UNK
     Route: 048
     Dates: start: 200809, end: 20081231
  6. PLATELETS [Concomitant]
     Active Substance: HUMAN PLATELET, ALLOGENIC
     Dosage: 10 U, TWICE A WEEK
     Route: 065
     Dates: start: 20081224
  7. KLARICID [Concomitant]
     Active Substance: CLARITHROMYCIN
     Indication: PROPHYLAXIS
     Dosage: 400 MG, UNK
     Route: 065
     Dates: start: 200809, end: 20081231
  8. RED BLOOD CELLS, LEUCOCYTE DEPLETED [Concomitant]
     Active Substance: HUMAN RED BLOOD CELL
     Dosage: 2 U, EVERY WEEK
     Dates: start: 20080910
  9. RED BLOOD CELLS, LEUCOCYTE DEPLETED [Concomitant]
     Active Substance: HUMAN RED BLOOD CELL
     Dosage: 2 U, EVERY WEEK
     Route: 065
     Dates: start: 20080507, end: 20080804
  10. RED BLOOD CELLS, LEUCOCYTE DEPLETED [Concomitant]
     Active Substance: HUMAN RED BLOOD CELL
     Dosage: 2 U, 2 TO 3 TIMES A WEEK
     Dates: start: 20080804, end: 20080905
  11. PLATELETS [Concomitant]
     Active Substance: HUMAN PLATELET, ALLOGENIC
     Dosage: 10 U, EVERY WEEK
     Route: 065
     Dates: start: 20080917, end: 20081008
  12. ITRIZOLE [Concomitant]
     Active Substance: ITRACONAZOLE
     Indication: PROPHYLAXIS
     Dosage: 200 MG, UNK
     Route: 048
     Dates: start: 200809, end: 20081231
  13. RED BLOOD CELLS, LEUCOCYTE DEPLETED [Concomitant]
     Active Substance: HUMAN RED BLOOD CELL
     Indication: PRODUCT USED FOR UNKNOWN INDICATION
     Dosage: 2 U, EVERY 2 WEEKS
     Route: 065
     Dates: start: 20080326, end: 20080423

REACTIONS (10)
  - Gamma-glutamyltransferase increased [Unknown]
  - Blood bilirubin increased [Unknown]
  - Myelodysplastic syndrome [Fatal]
  - C-reactive protein increased [Unknown]
  - Eosinophil count increased [Unknown]
  - Blood urea increased [Unknown]
  - Blood lactate dehydrogenase increased [Unknown]
  - Disease progression [Fatal]
  - White blood cell count increased [Fatal]
  - Basophil count decreased [Unknown]

NARRATIVE: CASE EVENT DATE: 200812
